FAERS Safety Report 25498715 (Version 1)
Quarter: 2025Q3

REPORT INFORMATION
  Report Type: Spontaneous
  Country: JP (occurrence: None)
  Receive Date: 20250701
  Receipt Date: 20250701
  Transmission Date: 20251021
  Serious: Yes (Hospitalization, Other)
  Sender: MAIA PHARMACEUTICALS
  Company Number: JP-MAIA Pharmaceuticals, Inc.-MAI202506-000084

PATIENT
  Age: 82 Year
  Sex: Male

DRUGS (2)
  1. BACLOFEN [Suspect]
     Active Substance: BACLOFEN
     Indication: Hiccups
  2. CHLORPROMAZINE [Concomitant]
     Active Substance: CHLORPROMAZINE
     Indication: Hiccups
     Route: 065

REACTIONS (8)
  - Dyskinesia [Recovering/Resolving]
  - Thrombocytopenia [Unknown]
  - Toxicity to various agents [Unknown]
  - Vomiting [Unknown]
  - Depressed level of consciousness [Recovering/Resolving]
  - Condition aggravated [Recovering/Resolving]
  - Renal impairment [Unknown]
  - Product use in unapproved indication [Unknown]
